FAERS Safety Report 25376075 (Version 1)
Quarter: 2025Q2

REPORT INFORMATION
  Report Type: Spontaneous
  Country: US (occurrence: US)
  Receive Date: 20250529
  Receipt Date: 20250529
  Transmission Date: 20250717
  Serious: Yes (Other)
  Sender: ALEXION PHARMACEUTICALS
  Company Number: US-ASTRAZENECA-202505USA020279US

PATIENT
  Age: 42 Year
  Weight: 96 kg

DRUGS (40)
  1. ROSUVASTATIN [Suspect]
     Active Substance: ROSUVASTATIN
  2. SEROQUEL [Suspect]
     Active Substance: QUETIAPINE FUMARATE
  3. TREPROSTINIL SODIUM [Suspect]
     Active Substance: TREPROSTINIL SODIUM
  4. TIZANIDINE [Suspect]
     Active Substance: TIZANIDINE
  5. BACLOFEN [Suspect]
     Active Substance: BACLOFEN
  6. VALIUM [Suspect]
     Active Substance: DIAZEPAM
  7. BUPRENORPHINE [Concomitant]
     Active Substance: BUPRENORPHINE
  8. DRISDOL [Concomitant]
     Active Substance: ERGOCALCIFEROL
  9. ESCITALOPRAM [Concomitant]
     Active Substance: ESCITALOPRAM OXALATE
  10. GUAIFENESIN [Concomitant]
     Active Substance: GUAIFENESIN
  11. INSULIN GLARGINE-YFGN [Concomitant]
     Active Substance: INSULIN GLARGINE-YFGN
  12. INSULIN LISPRO [Concomitant]
     Active Substance: INSULIN LISPRO
  13. LEVOTHYROXINE SODIUM [Concomitant]
     Active Substance: LEVOTHYROXINE SODIUM
  14. MACITENTAN [Concomitant]
     Active Substance: MACITENTAN
  15. MONTELUKAST [Concomitant]
     Active Substance: MONTELUKAST
  16. PANTOPRAZOLE [Concomitant]
     Active Substance: PANTOPRAZOLE
  17. PREGABALIN [Concomitant]
     Active Substance: PREGABALIN
  18. XIFAXAN [Concomitant]
     Active Substance: RIFAXIMIN
  19. ROSUVASTATIN [Concomitant]
     Active Substance: ROSUVASTATIN
  20. DUONEB [Concomitant]
     Active Substance: ALBUTEROL SULFATE\IPRATROPIUM BROMIDE
  21. SODIUM CHLORIDE [Concomitant]
     Active Substance: SODIUM CHLORIDE
  22. SODIUM FERRIC GLUCONATE COMPLEX [Concomitant]
     Active Substance: SODIUM FERRIC GLUCONATE COMPLEX
  23. SPIRONOLACTONE [Concomitant]
     Active Substance: SPIRONOLACTONE
  24. TADALAFIL [Concomitant]
     Active Substance: TADALAFIL
  25. ACETAMINOPHEN [Concomitant]
     Active Substance: ACETAMINOPHEN
  26. ALUMINA, MAGNESIA, AND SIMETHICONE [Concomitant]
     Active Substance: ALUMINUM HYDROXIDE\DIMETHICONE\MAGNESIUM HYDROXIDE
  27. Dulcolax [Concomitant]
  28. ATROPINE\DIPHENOXYLATE [Concomitant]
     Active Substance: ATROPINE\DIPHENOXYLATE
  29. DOCUSATE SODIUM AND SENNA [Concomitant]
     Active Substance: DOCUSATE SODIUM\SENNOSIDES
  30. HYDROXYZINE HYDROCHLORIDE [Concomitant]
     Active Substance: HYDROXYZINE HYDROCHLORIDE
  31. MAGNESIUM SULFATE [Concomitant]
     Active Substance: MAGNESIUM SULFATE
  32. MIDODRINE HYDROCHLORIDE [Concomitant]
     Active Substance: MIDODRINE HYDROCHLORIDE
  33. OLANZAPINE [Concomitant]
     Active Substance: OLANZAPINE
  34. ONDANSETRON [Concomitant]
     Active Substance: ONDANSETRON
  35. OXYCODONE [Concomitant]
     Active Substance: OXYCODONE
  36. POTASSIUM CHLORIDE [Concomitant]
     Active Substance: POTASSIUM CHLORIDE
  37. PROMETHAZINE [Concomitant]
     Active Substance: PROMETHAZINE HYDROCHLORIDE
  38. SODIUM PHOSPHATE [Concomitant]
     Active Substance: SODIUM PHOSPHATE
  39. SOTATERCEPT [Concomitant]
     Active Substance: SOTATERCEPT
  40. NOREPINEPHRINE [Concomitant]
     Active Substance: NOREPINEPHRINE

REACTIONS (25)
  - Deep vein thrombosis [Unknown]
  - Hypokalaemia [Unknown]
  - Pneumonia [Unknown]
  - Lung consolidation [Unknown]
  - Atelectasis [Unknown]
  - Hypotension [Unknown]
  - Asthenia [Unknown]
  - Dyspepsia [Unknown]
  - Constipation [Unknown]
  - Somnolence [Unknown]
  - Breakthrough pain [Unknown]
  - Diarrhoea [Unknown]
  - Pruritus [Unknown]
  - Peroneal nerve palsy [Unknown]
  - Hypomagnesaemia [Unknown]
  - Agitation [Unknown]
  - Nausea [Unknown]
  - Vomiting [Unknown]
  - Limb discomfort [Unknown]
  - Dry mouth [Unknown]
  - Fatigue [Unknown]
  - Blood sodium decreased [Unknown]
  - Blood urea increased [Unknown]
  - Blood glucose increased [Unknown]
  - Paraesthesia [Unknown]
